FAERS Safety Report 21643785 (Version 1)
Quarter: 2022Q4

REPORT INFORMATION
  Report Type: Report from Study
  Country: MX (occurrence: MX)
  Receive Date: 20221125
  Receipt Date: 20221125
  Transmission Date: 20230113
  Serious: Yes (Hospitalization, Other)
  Sender: FDA-Public Use
  Company Number: MX-002147023-NVSC2022MX264253

PATIENT
  Sex: Female
  Weight: 144 kg

DRUGS (1)
  1. CERTICAN [Suspect]
     Active Substance: EVEROLIMUS
     Indication: Product used for unknown indication
     Dosage: UNK (STOP DATE: 7 MONTHS AGO)
     Route: 048

REACTIONS (5)
  - Depression [Recovering/Resolving]
  - Anxiety [Recovering/Resolving]
  - Blood pressure abnormal [Recovering/Resolving]
  - Drug ineffective [Unknown]
  - Blood cholesterol abnormal [Unknown]
